FAERS Safety Report 5117255-0 (Version None)
Quarter: 2006Q3

REPORT INFORMATION
  Report Type: 
  Country: None (occurrence: None)
  Receive Date: 20060927
  Receipt Date: 20060927
  Transmission Date: 20061208
  Serious: Yes (Hospitalization)
  Sender: FDA-Public Use
  Company Number: None

PATIENT
  Age: 55 Year
  Sex: Male
  Weight: 80 kg

DRUGS (3)
  1. CISPLATIN [Suspect]
     Indication: NEOPLASM MALIGNANT
     Dosage: 65 MG IV X 3 DAYS
     Route: 042
     Dates: start: 20060912, end: 20060914
  2. BEVACIZUMAB 10 MG/KG [Suspect]
     Indication: NEOPLASM MALIGNANT
     Dosage: 812 MG IV EVERY 2 WKS
     Route: 042
     Dates: start: 20060912
  3. ERLOTINIB [Concomitant]

REACTIONS (7)
  - BLOOD BILIRUBIN INCREASED [None]
  - BLOOD CHLORIDE DECREASED [None]
  - ELECTROLYTE IMBALANCE [None]
  - FEELING ABNORMAL [None]
  - HEPATIC ENZYME INCREASED [None]
  - HYPONATRAEMIA [None]
  - PERFORMANCE STATUS DECREASED [None]
